FAERS Safety Report 8178827 (Version 2)
Quarter: 2013Q3

REPORT INFORMATION
  Report Type: Spontaneous
  Country: RU (occurrence: RU)
  Receive Date: 20111013
  Receipt Date: 20130910
  Transmission Date: 20140515
  Serious: Yes (Death)
  Sender: FDA-Public Use
  Company Number: RU-GENZYME-POMP-1001814

PATIENT
  Age: 11 Month
  Sex: Male
  Weight: 7 kg

DRUGS (2)
  1. MYOZYME [Suspect]
     Indication: GLYCOGEN STORAGE DISEASE TYPE II
     Dosage: 21 MG/KG, Q2W
     Route: 042
     Dates: start: 20110819
  2. ANTIBIOTICS [Concomitant]
     Indication: PRODUCT USED FOR UNKNOWN INDICATION
     Dosage: UNK UNK, UNK
     Route: 065
     Dates: start: 201109, end: 201109

REACTIONS (1)
  - Cardiopulmonary failure [Fatal]
